FAERS Safety Report 4850644-8 (Version None)
Quarter: 2005Q4

REPORT INFORMATION
  Report Type: 
  Country: None (occurrence: None)
  Receive Date: 20051212
  Receipt Date: 20051201
  Transmission Date: 20060501
  Serious: Yes (Death)
  Sender: FDA-Public Use
  Company Number: GB-JNJFOC-20050501336

PATIENT
  Age: 46 Year
  Weight: 74 kg

DRUGS (12)
  1. REMICADE [Suspect]
     Indication: RHEUMATOID ARTHRITIS
     Route: 042
  2. METHOTREXATE [Concomitant]
     Indication: RHEUMATOID ARTHRITIS
     Route: 048
  3. PREDNISOLONE [Concomitant]
     Indication: RHEUMATOID ARTHRITIS
     Route: 048
  4. CO-PROXAMOL [Concomitant]
     Route: 048
  5. CO-PROXAMOL [Concomitant]
     Indication: RHEUMATOID ARTHRITIS
     Dosage: 2 QDS (2 TABLETS 4 TIMES A DAY)
     Route: 048
  6. AMITRIPTYLINE HCL [Concomitant]
     Indication: RHEUMATOID ARTHRITIS
     Dosage: 25MG AT NIGHT TIME
     Route: 048
  7. ASPIRIN [Concomitant]
     Route: 065
  8. CALCICHEW D3 [Concomitant]
     Route: 065
  9. RISPERIDONE [Concomitant]
     Route: 065
  10. LANSOPRAZOLE [Concomitant]
     Route: 065
  11. PROPRANOLOL [Concomitant]
  12. BENDROFLUAZIDE [Concomitant]
     Route: 065

REACTIONS (1)
  - DEATH [None]
